FAERS Safety Report 6445069-8 (Version None)
Quarter: 2009Q4

REPORT INFORMATION
  Report Type: 
  Country: None (occurrence: None)
  Receive Date: 20091118
  Receipt Date: 20091109
  Transmission Date: 20100525
  Serious: No
  Sender: FDA-Public Use
  Company Number: FR-GENENTECH-290618

PATIENT
  Sex: Female
  Weight: 56.5 kg

DRUGS (9)
  1. MABTHERA [Suspect]
     Indication: RHEUMATOID ARTHRITIS
     Dosage: 1 G, UNK
     Route: 042
     Dates: start: 20090716
  2. BOTOX [Suspect]
     Indication: MUSCLE SPASMS
     Dosage: 0.5 UNK, UNK
  3. DEROXAT [Concomitant]
     Indication: DRUG USE FOR UNKNOWN INDICATION
  4. LORMETAZEPAM [Concomitant]
     Indication: DRUG USE FOR UNKNOWN INDICATION
  5. XANAX [Concomitant]
     Indication: DRUG USE FOR UNKNOWN INDICATION
  6. TETRAZEPAM [Concomitant]
     Indication: DRUG USE FOR UNKNOWN INDICATION
  7. VALSARTAN AND HYDROCHLOROTHIAZIDE [Concomitant]
     Indication: DRUG USE FOR UNKNOWN INDICATION
  8. PARACETAMOL [Concomitant]
     Indication: DRUG USE FOR UNKNOWN INDICATION
  9. STEROGYL [Concomitant]
     Indication: DRUG USE FOR UNKNOWN INDICATION

REACTIONS (1)
  - KERATITIS [None]
